FAERS Safety Report 16824379 (Version 1)
Quarter: 2019Q3

REPORT INFORMATION
  Report Type: Spontaneous
  Country: US (occurrence: US)
  Receive Date: 20190918
  Receipt Date: 20190918
  Transmission Date: 20191005
  Serious: No
  Sender: FDA-Public Use
  Company Number: US-TEVA-2019-US-1108029

PATIENT
  Sex: Female

DRUGS (1)
  1. LIDOCAINE TOPICAL 5% PATCH ACTAVIS [Suspect]
     Active Substance: LIDOCAINE
     Route: 062

REACTIONS (1)
  - Application site vesicles [Unknown]
